FAERS Safety Report 19671069 (Version 1)
Quarter: 2021Q3

REPORT INFORMATION
  Report Type: Report from Study
  Country: DE (occurrence: DE)
  Receive Date: 20210806
  Receipt Date: 20210806
  Transmission Date: 20211014
  Serious: Yes (Hospitalization)
  Sender: FDA-Public Use
  Company Number: DE-ROCHE-2489299

PATIENT
  Age: 62 Year
  Sex: Female
  Weight: 83 kg

DRUGS (3)
  1. BLINDED ATEZOLIZUMAB [Suspect]
     Active Substance: ATEZOLIZUMAB
     Indication: OVARIAN CANCER RECURRENT
     Dosage: ON 22/NOV/2019, SHE RECEIVED LAST DOSE OF BLINDED ATEZOLIZUMAB PRIOR TO SAE
     Route: 041
     Dates: start: 20190812
  2. PACLITAXEL. [Suspect]
     Active Substance: PACLITAXEL
     Indication: OVARIAN CANCER RECURRENT
     Dosage: ON 22/NOV/2019, SHE RECEIVED LAST DOSE OF PACLITAXEL PRIOR TO SAE
     Route: 042
     Dates: start: 20190812
  3. BEVACIZUMAB. [Suspect]
     Active Substance: BEVACIZUMAB
     Indication: OVARIAN CANCER RECURRENT
     Dosage: ON 22/NOV/2019, SHE RECEIVED LAST DOSE OF BEVACIZUMAB PRIOR TO SAE
     Route: 042
     Dates: start: 20190812

REACTIONS (1)
  - Pyrexia [Recovered/Resolved]

NARRATIVE: CASE EVENT DATE: 20191128
